FAERS Safety Report 4381615-6 (Version None)
Quarter: 2004Q2

REPORT INFORMATION
  Report Type: 
  Country: None (occurrence: None)
  Receive Date: 20040621
  Receipt Date: 20040503
  Transmission Date: 20050107
  Serious: Yes (Other)
  Sender: FDA-Public Use
  Company Number: CA-ROCHE-366298

PATIENT
  Age: 15 Year
  Sex: Female

DRUGS (2)
  1. VESANOID [Suspect]
     Indication: DRUG USE FOR UNKNOWN INDICATION
     Route: 065
  2. DAUNORUBICIN HCL [Suspect]
     Indication: DRUG USE FOR UNKNOWN INDICATION
     Route: 042

REACTIONS (10)
  - ABDOMINAL PAIN [None]
  - CARDIAC FAILURE [None]
  - CHEST PAIN [None]
  - HYPOTENSION [None]
  - LUNG INFILTRATION [None]
  - PERICARDITIS [None]
  - PLEURAL EFFUSION [None]
  - PLEURITIC PAIN [None]
  - PYREXIA [None]
  - RESPIRATORY DISTRESS [None]
